FAERS Safety Report 19906783 (Version 1)
Quarter: 2021Q3

REPORT INFORMATION
  Report Type: Spontaneous
  Country: US (occurrence: US)
  Receive Date: 20210930
  Receipt Date: 20210930
  Transmission Date: 20211014
  Serious: Yes (Other)
  Sender: FDA-Public Use
  Company Number: None

PATIENT
  Age: 65 Year
  Sex: Male
  Weight: 127.01 kg

DRUGS (8)
  1. HUMIRA [Suspect]
     Active Substance: ADALIMUMAB
     Indication: PSORIATIC ARTHROPATHY
     Dosage: QUANTITY:2 PENS IN A BOX;OTHER FREQUENCY:2 TIMES PER MONTH;OTHER ROUTE:ALL 40 PENS SENT TO ME SINCE PRESCRIBED??USING 3?4 MONTHS
     Route: 048
     Dates: start: 202106
  2. JARDIANCE [Concomitant]
     Active Substance: EMPAGLIFLOZIN
  3. MULTIPLE VITAMINS [Concomitant]
     Active Substance: VITAMINS
  4. LISINOPRIL. [Concomitant]
     Active Substance: LISINOPRIL
  5. ARORVASTATIN [Concomitant]
  6. METHOTRAXATE [Concomitant]
     Active Substance: METHOTREXATE SODIUM
  7. JUNAVIA [Concomitant]
  8. METFORMIN [Concomitant]
     Active Substance: METFORMIN HYDROCHLORIDE

REACTIONS (2)
  - Injection site pruritus [None]
  - Injection site discomfort [None]

NARRATIVE: CASE EVENT DATE: 20210904
